FAERS Safety Report 8963044 (Version 1)
Quarter: 2012Q4

REPORT INFORMATION
  Report Type: 
  Country: US (occurrence: US)
  Receive Date: 20121213
  Receipt Date: 20121213
  Transmission Date: 20130627
  Serious: Yes (Other)
  Sender: FDA-Public Use
  Company Number: US-009507513-1005USA04671

PATIENT

DRUGS (2)
  1. FOSAMAX [Suspect]
     Dosage: total duration btwn daily + wkly dosing was 10 years
     Route: 048
  2. FOSAMAX [Suspect]
     Dosage: total duration btwn daily + wkly dosing was 10 years
     Route: 048

REACTIONS (7)
  - Lower limb fracture [Recovering/Resolving]
  - Femur fracture [Unknown]
  - Surgery [Recovering/Resolving]
  - Femur fracture [Unknown]
  - Femur fracture [Unknown]
  - Thrombosis [Unknown]
  - Pain [Unknown]
